FAERS Safety Report 8234874-3 (Version None)
Quarter: 2012Q1

REPORT INFORMATION
  Report Type: 
  Country: None (occurrence: None)
  Receive Date: 20120326
  Receipt Date: 20120315
  Transmission Date: 20120608
  Serious: Yes (Hospitalization)
  Sender: FDA-Public Use
  Company Number: FR-ELI_LILLY_AND_COMPANY-FR201203004093

PATIENT
  Sex: Female

DRUGS (1)
  1. FORTEO [Suspect]
     Indication: HYPOPARATHYROIDISM
     Dosage: 20 UG, QD
     Route: 058
     Dates: start: 20120214, end: 20120215

REACTIONS (2)
  - OFF LABEL USE [None]
  - PYREXIA [None]
